FAERS Safety Report 5085446-3 (Version None)
Quarter: 2006Q3

REPORT INFORMATION
  Report Type: 
  Country: None (occurrence: None)
  Receive Date: 20060816
  Receipt Date: 20060811
  Transmission Date: 20061208
  Serious: Yes (Hospitalization)
  Sender: FDA-Public Use
  Company Number: HQWYE268419JUN06

PATIENT
  Age: 41 Year
  Sex: Male

DRUGS (10)
  1. RAPAMUNE [Suspect]
     Indication: PROPHYLAXIS AGAINST TRANSPLANT REJECTION
     Dosage: 10 MG 1X PER 1 DAY, ORAL
     Route: 048
     Dates: start: 20060329, end: 20060611
  2. ATORVASTATIN CALCIUM [Concomitant]
  3. MEPREDNISONE (MEPREDNISONE) [Concomitant]
  4. MYCOPHENOLATE MOFETIL [Concomitant]
  5. FUROSEMIDE [Concomitant]
  6. EPOGEN [Concomitant]
  7. BACTRIM [Concomitant]
  8. LEUCOVORIN (LEUCOVORIN) [Concomitant]
  9. NIFEDIPINE [Concomitant]
  10. OMEPRAZOLE [Concomitant]

REACTIONS (3)
  - RENAL FAILURE ACUTE [None]
  - URINARY ANASTOMOTIC LEAK [None]
  - URINOMA [None]
